FAERS Safety Report 5878485-3 (Version None)
Quarter: 2008Q3

REPORT INFORMATION
  Report Type: 
  Country: None (occurrence: None)
  Receive Date: 20080911
  Receipt Date: 20080708
  Transmission Date: 20090109
  Serious: No
  Sender: FDA-Public Use
  Company Number: US-AMGEN-KDL292989

PATIENT
  Sex: Female

DRUGS (5)
  1. NEUPOGEN [Suspect]
     Indication: CHEMOTHERAPY
     Dates: start: 20080521, end: 20080525
  2. ADRIAMYCIN PFS [Concomitant]
  3. CYCLOPHOSPHAMIDE [Concomitant]
  4. ZOFRAN [Concomitant]
  5. DECADRON SRC [Concomitant]

REACTIONS (7)
  - BEDRIDDEN [None]
  - DYSPHAGIA [None]
  - EATING DISORDER [None]
  - GASTROINTESTINAL SOUNDS ABNORMAL [None]
  - MUCOUS MEMBRANE DISORDER [None]
  - OESOPHAGITIS [None]
  - VIRAL INFECTION [None]
